FAERS Safety Report 7705439-4 (Version None)
Quarter: 2011Q3

REPORT INFORMATION
  Report Type: 
  Country: None (occurrence: None)
  Receive Date: 20110818
  Receipt Date: 20110802
  Transmission Date: 20111222
  Serious: Yes (Death, Life-Threatening, Other)
  Sender: FDA-Public Use
  Company Number: 2011MA010860

PATIENT
  Age: 31 Year
  Sex: Male

DRUGS (11)
  1. DMD (NO PREF. NAME) [Suspect]
     Indication: DRUG ABUSE
  2. OXAZEPAM [Suspect]
     Indication: DRUG ABUSE
  3. HEROIN (DIAMORPHINE) [Suspect]
     Indication: DRUG ABUSE
  4. ECGONINE METHYL ESTER (NO PREF. NAME) [Suspect]
     Indication: DRUG ABUSE
  5. DIAZEPAM [Suspect]
     Indication: DRUG ABUSE
  6. TEMAZEPAM [Suspect]
     Indication: DRUG ABUSE
  7. BENZOYLECGONINE (NO PREF. NAME) [Suspect]
     Indication: DRUG ABUSE
  8. MORPHINE [Suspect]
     Indication: DRUG ABUSE
  9. CODEINE SULFATE [Suspect]
     Indication: DRUG ABUSE
  10. COCAINE (COCAINE) [Suspect]
     Indication: DRUG ABUSE
  11. DIHYDROCODEINE BITARTRATE INJ [Suspect]
     Indication: DRUG ABUSE

REACTIONS (3)
  - TOXICITY TO VARIOUS AGENTS [None]
  - SNORING [None]
  - FALL [None]
